FAERS Safety Report 6228647-0 (Version None)
Quarter: 2009Q2

REPORT INFORMATION
  Report Type: 
  Country: None (occurrence: None)
  Receive Date: 20090612
  Receipt Date: 20090601
  Transmission Date: 20091009
  Serious: Yes (Other)
  Sender: FDA-Public Use
  Company Number: CA-PFIZER INC-2009223764

PATIENT
  Age: 45 Year

DRUGS (6)
  1. SERTRALINE HCL [Suspect]
     Indication: DEPRESSION
  2. PREDNISONE [Suspect]
     Indication: DEAFNESS
     Dosage: 60 MG, UNK
  3. ALL OTHER THERAPEUTIC PRODUCTS [Suspect]
     Indication: BACK PAIN
     Dosage: 6-12 PER DAY
  4. ALL OTHER THERAPEUTIC PRODUCTS [Suspect]
     Dosage: 15-25 PER DAY
  5. OXYCODONE [Suspect]
     Dosage: OCCASIONALLY
  6. AMINOSALICYLIC ACID [Suspect]
     Indication: COLITIS ULCERATIVE

REACTIONS (8)
  - BALANCE DISORDER [None]
  - DEAFNESS NEUROSENSORY [None]
  - DRUG ABUSE [None]
  - DRUG DEPENDENCE [None]
  - DRUG INEFFECTIVE [None]
  - LIVER DISORDER [None]
  - RENAL DISORDER [None]
  - TINNITUS [None]
